FAERS Safety Report 11707013 (Version 6)
Quarter: 2018Q1

REPORT INFORMATION
  Report Type: Spontaneous
  Country: US (occurrence: US)
  Receive Date: 20151106
  Receipt Date: 20180129
  Transmission Date: 20180508
  Serious: No
  Sender: FDA-Public Use
  Company Number: US-ACTELION PHARMACEUTICALS US, INC.-A-US2015-126831

PATIENT
  Age: 75 Year
  Sex: Female

DRUGS (21)
  1. RECLAST [Concomitant]
     Active Substance: ZOLEDRONIC ACID
  2. NASONEX [Concomitant]
     Active Substance: MOMETASONE FUROATE
  3. SYNTHROID [Concomitant]
     Active Substance: LEVOTHYROXINE SODIUM
  4. OXYGEN. [Concomitant]
     Active Substance: OXYGEN
  5. RIOCIGUAT [Concomitant]
     Active Substance: RIOCIGUAT
  6. LANTUS [Concomitant]
     Active Substance: INSULIN GLARGINE
  7. JANUVIA [Concomitant]
     Active Substance: SITAGLIPTIN PHOSPHATE
  8. FUROSEMIDE. [Concomitant]
     Active Substance: FUROSEMIDE
  9. VOLTAREN [Concomitant]
     Active Substance: DICLOFENAC SODIUM
  10. OXYCONTIN [Concomitant]
     Active Substance: OXYCODONE HYDROCHLORIDE
  11. FLUOXETINE [Concomitant]
     Active Substance: FLUOXETINE HYDROCHLORIDE
  12. ATENOLOL. [Concomitant]
     Active Substance: ATENOLOL
  13. CRESTOR [Concomitant]
     Active Substance: ROSUVASTATIN CALCIUM
  14. ALPRAZOLAM. [Concomitant]
     Active Substance: ALPRAZOLAM
  15. VITAMIN D [Concomitant]
     Active Substance: CHOLECALCIFEROL
  16. OPSUMIT [Suspect]
     Active Substance: MACITENTAN
     Indication: PULMONARY HYPERTENSION
     Dosage: 10 MG, QD
     Route: 048
     Dates: start: 20141002
  17. VENTOLIN [Concomitant]
     Active Substance: ALBUTEROL SULFATE
  18. COUMADIN [Concomitant]
     Active Substance: WARFARIN SODIUM
  19. ACETAZOLAMIDE. [Concomitant]
     Active Substance: ACETAZOLAMIDE
  20. BELVIQ [Concomitant]
     Active Substance: LORCASERIN HYDROCHLORIDE
  21. DOXEPIN [Concomitant]
     Active Substance: DOXEPIN

REACTIONS (8)
  - Extra dose administered [Recovered/Resolved]
  - Unevaluable event [Unknown]
  - Swelling [Unknown]
  - Drug dose omission [Unknown]
  - Dysuria [Not Recovered/Not Resolved]
  - Epistaxis [Recovered/Resolved]
  - Lower respiratory tract infection [Not Recovered/Not Resolved]
  - Dyspnoea [Unknown]

NARRATIVE: CASE EVENT DATE: 201510
